FAERS Safety Report 19960308 (Version 2)
Quarter: 2023Q1

REPORT INFORMATION
  Report Type: Spontaneous
  Country: CA (occurrence: None)
  Receive Date: 20211015
  Receipt Date: 20230130
  Transmission Date: 20230418
  Serious: Yes (Hospitalization)
  Sender: FDA-Public Use
  Company Number: CA-ROCHE-2932190

PATIENT
  Sex: Male

DRUGS (2)
  1. RITUXIMAB [Suspect]
     Active Substance: RITUXIMAB
     Indication: Anti-neutrophil cytoplasmic antibody positive vasculitis
     Route: 041
  2. RITUXIMAB [Suspect]
     Active Substance: RITUXIMAB
     Route: 041

REACTIONS (18)
  - Attention deficit hyperactivity disorder [Not Recovered/Not Resolved]
  - Azotaemia [Not Recovered/Not Resolved]
  - Blood creatinine abnormal [Not Recovered/Not Resolved]
  - Blood creatinine increased [Not Recovered/Not Resolved]
  - Depression [Not Recovered/Not Resolved]
  - Dyslipidaemia [Not Recovered/Not Resolved]
  - Fatigue [Not Recovered/Not Resolved]
  - Hypervolaemia [Not Recovered/Not Resolved]
  - Gastrooesophageal reflux disease [Not Recovered/Not Resolved]
  - Lung opacity [Not Recovered/Not Resolved]
  - Nasal congestion [Not Recovered/Not Resolved]
  - Oedema peripheral [Not Recovered/Not Resolved]
  - Renal atrophy [Not Recovered/Not Resolved]
  - Renal cyst [Not Recovered/Not Resolved]
  - Renal disorder [Not Recovered/Not Resolved]
  - Swelling of eyelid [Not Recovered/Not Resolved]
  - Weight increased [Not Recovered/Not Resolved]
  - Hypervolaemia [Not Recovered/Not Resolved]
